FAERS Safety Report 9785353 (Version 1)
Quarter: 2013Q4

REPORT INFORMATION
  Report Type: Spontaneous
  Country: JP (occurrence: None)
  Receive Date: 20131223
  Receipt Date: 20131223
  Transmission Date: 20140711
  Serious: Yes (Death)
  Sender: FDA-Public Use
  Company Number: JP-014052

PATIENT
  Age: 69 Year
  Sex: Male

DRUGS (1)
  1. DEGARELIX (GONAX) 80 MG [Suspect]
     Indication: PROSTATE CANCER
     Route: 058
     Dates: start: 20130909, end: 20131120

REACTIONS (1)
  - Intentional drug misuse [None]
